FAERS Safety Report 19569948 (Version 2)
Quarter: 2021Q3

REPORT INFORMATION
  Report Type: Report from Study
  Country: TH (occurrence: TH)
  Receive Date: 20210716
  Receipt Date: 20210811
  Transmission Date: 20211014
  Serious: Yes (Hospitalization)
  Sender: FDA-Public Use
  Company Number: TH-SEATTLE GENETICS-2021SGN03722

PATIENT
  Age: 38 Year
  Sex: Male

DRUGS (1)
  1. BRENTUXIMAB VEDOTIN [Suspect]
     Active Substance: BRENTUXIMAB VEDOTIN
     Indication: HODGKIN^S DISEASE
     Dosage: 135 MILLIGRAM, Q3WEEKS
     Route: 042
     Dates: start: 20210614

REACTIONS (2)
  - Stomatitis [Unknown]
  - Pyrexia [Unknown]
